FAERS Safety Report 5971199-0 (Version None)
Quarter: 2008Q4

REPORT INFORMATION
  Report Type: 
  Country: None (occurrence: None)
  Receive Date: 20081128
  Receipt Date: 20081114
  Transmission Date: 20090506
  Serious: Yes (Death)
  Sender: FDA-Public Use
  Company Number: IE-ROCHE-593111

PATIENT
  Sex: Female
  Weight: 70 kg

DRUGS (1)
  1. MIRCERA [Suspect]
     Dosage: DOSAGE REGIMEN REPORTED AS Q2/52.
     Route: 058
     Dates: start: 20080904

REACTIONS (2)
  - CEREBROVASCULAR ACCIDENT [None]
  - PNEUMONIA [None]
